FAERS Safety Report 14321866 (Version 5)
Quarter: 2018Q2

REPORT INFORMATION
  Report Type: Spontaneous
  Country: RO (occurrence: RO)
  Receive Date: 20171224
  Receipt Date: 20180523
  Transmission Date: 20180711
  Serious: Yes (Other)
  Sender: FDA-Public Use
  Company Number: RO-ABBVIE-17S-135-2201864-00

PATIENT
  Age: 68 Year
  Sex: Female
  Weight: 54 kg

DRUGS (11)
  1. URSODEOXYCHOLIC ACID [Concomitant]
     Active Substance: URSODIOL
     Dosage: UNK
     Dates: start: 20160309
  2. SILIMARIN [Concomitant]
     Indication: PRODUCT USED FOR UNKNOWN INDICATION
  3. RIBAVIRIN. [Suspect]
     Active Substance: RIBAVIRIN
     Indication: HEPATITIS C
     Dosage: 600 MG, QD
     Route: 048
     Dates: start: 20170628, end: 20170719
  4. HARVONI [Suspect]
     Active Substance: LEDIPASVIR\SOFOSBUVIR
     Indication: HEPATITIS C
     Dosage: 1 DF
     Route: 048
     Dates: start: 20170621, end: 20170912
  5. URSODEOXYCHOLIC ACID [Concomitant]
     Active Substance: URSODIOL
     Indication: PRODUCT USED FOR UNKNOWN INDICATION
  6. INULIN [Concomitant]
     Active Substance: INULIN
     Route: 065
  7. LACTULOSE. [Concomitant]
     Active Substance: LACTULOSE
     Indication: PRODUCT USED FOR UNKNOWN INDICATION
     Dosage: UNK
     Dates: start: 20160309
  8. DIUREX [Concomitant]
     Active Substance: AMILORIDE HYDROCHLORIDE\HYDROCHLOROTHIAZIDE
     Indication: PRODUCT USED FOR UNKNOWN INDICATION
     Dosage: UNK
     Dates: start: 20160309
  9. RIBAVIRIN. [Suspect]
     Active Substance: RIBAVIRIN
     Indication: HEPATITIS C
     Dosage: 400 MG, UNK
     Route: 048
     Dates: start: 20170720, end: 20170912
  10. LACTULOSE. [Concomitant]
     Active Substance: LACTULOSE
     Route: 065
  11. INULIN [Concomitant]
     Active Substance: INULIN
     Indication: PRODUCT USED FOR UNKNOWN INDICATION
     Dosage: UNK
     Dates: start: 20160309

REACTIONS (5)
  - Haemoglobin decreased [Unknown]
  - Off label use [Recovered/Resolved]
  - Hepatocellular carcinoma [Not Recovered/Not Resolved]
  - Drug ineffective [Not Recovered/Not Resolved]
  - Hepatitis C [Not Recovered/Not Resolved]

NARRATIVE: CASE EVENT DATE: 2017
